FAERS Safety Report 5485437-4 (Version None)
Quarter: 2007Q4

REPORT INFORMATION
  Report Type: 
  Country: None (occurrence: None)
  Receive Date: 20071011
  Receipt Date: 20071005
  Transmission Date: 20080405
  Serious: Yes (Death)
  Sender: FDA-Public Use
  Company Number: 2007-165183-NL

PATIENT
  Age: 79 Year
  Sex: Female

DRUGS (2)
  1. MIRTAZAPINE [Suspect]
     Indication: DEMENTIA
     Dosage: DF;
     Dates: start: 20070812, end: 20070822
  2. ALCOHOL [Suspect]
     Dosage: DF;

REACTIONS (4)
  - ANTIDEPRESSANT DRUG LEVEL ABOVE THERAPEUTIC [None]
  - BLOOD ALCOHOL INCREASED [None]
  - COMA [None]
  - DIALYSIS [None]
